FAERS Safety Report 19681222 (Version 1)
Quarter: 2021Q3

REPORT INFORMATION
  Report Type: Spontaneous
  Country: US (occurrence: US)
  Receive Date: 20210810
  Receipt Date: 20210810
  Transmission Date: 20211014
  Serious: No
  Sender: FDA-Public Use
  Company Number: US-IGSA-SR10008504

PATIENT
  Age: 66 Year
  Sex: Female

DRUGS (2)
  1. GAMMAKED [Suspect]
     Active Substance: HUMAN IMMUNOGLOBULIN G
     Indication: IMMUNODEFICIENCY COMMON VARIABLE
     Dosage: 30 G, Q.M.T.
     Route: 042
     Dates: start: 20190524
  2. GAMMAKED [Suspect]
     Active Substance: HUMAN IMMUNOGLOBULIN G
     Dosage: 30 G, UNK
     Route: 042
     Dates: start: 201808

REACTIONS (10)
  - Muscle spasms [Unknown]
  - Palpitations [Unknown]
  - Blood pressure increased [Unknown]
  - Asthenia [Unknown]
  - Arthritis [Unknown]
  - Underweight [Unknown]
  - Decreased appetite [Unknown]
  - Alopecia [Unknown]
  - Arthralgia [Unknown]
  - Nausea [Unknown]

NARRATIVE: CASE EVENT DATE: 201808
